FAERS Safety Report 11604490 (Version 1)
Quarter: 2015Q4

REPORT INFORMATION
  Report Type: Spontaneous
  Country: US (occurrence: None)
  Receive Date: 20151006
  Receipt Date: 20151006
  Transmission Date: 20160304
  Serious: No
  Sender: FDA-Public Use
  Company Number: None

PATIENT
  Age: 72 Year
  Sex: Female
  Weight: 67.59 kg

DRUGS (33)
  1. COMBIGAN OPTHALMIC SOLUTION [Concomitant]
  2. CYCLOBENZAPRINE [Concomitant]
     Active Substance: CYCLOBENZAPRINE
  3. COQ10 [Concomitant]
     Active Substance: UBIDECARENONE
  4. AGED GARLIC [Concomitant]
  5. TAURINE [Concomitant]
     Active Substance: TAURINE
  6. GRAPE SEED EXTRACT [Concomitant]
     Active Substance: GRAPE SEED EXTRACT
  7. ANTACID TABS (CALCIUM CARBONATE) [Concomitant]
  8. AMLODIPINE BESYLATE. [Concomitant]
     Active Substance: AMLODIPINE BESYLATE
  9. L-GLUTAMINE /00503401/ [Concomitant]
     Active Substance: GLUTAMINE
  10. TRIPLE COMPLEX MAGNESIUM [Concomitant]
  11. RESVERATROL [Concomitant]
     Active Substance: RESVERATROL
  12. IRBESARTAN. [Concomitant]
     Active Substance: IRBESARTAN
  13. ACETAMINOPHEN. [Concomitant]
     Active Substance: ACETAMINOPHEN
  14. VITAMIN B12 [Concomitant]
     Active Substance: CYANOCOBALAMIN
  15. CALCIUM [Concomitant]
     Active Substance: CALCIUM
  16. BOSWELLIA SERRATA [Concomitant]
  17. VITAMIN E [Concomitant]
     Active Substance: .ALPHA.-TOCOPHEROL
  18. METOPROLOL TARTRATE. [Suspect]
     Active Substance: METOPROLOL TARTRATE
     Indication: BLOOD PRESSURE INCREASED
     Dosage: 100 MG 1 PILL TWICE DAILY BY MOUTH W/FOOD
     Route: 048
     Dates: start: 20150621, end: 20150718
  19. LATANOPROST OPTHALMIC SOLUTION [Concomitant]
  20. METAXALONE. [Concomitant]
     Active Substance: METAXALONE
  21. MULTI VITAMIN-NO IRON [Concomitant]
  22. B-6 [Concomitant]
  23. L-THEANINE [Concomitant]
     Active Substance: DIETARY SUPPLEMENT
  24. BILBERRY [Concomitant]
     Active Substance: BILBERRY
  25. ANTIHISTAMINE (CHLORPHENIRAMINE MALEATE) [Concomitant]
  26. METOPROLOL TARTRATE. [Concomitant]
     Active Substance: METOPROLOL TARTRATE
  27. D3 [Concomitant]
     Active Substance: 25-HYDROXYCHOLECALCIFEROL, 5-TRANS-
  28. L-CARNITINE [Concomitant]
     Active Substance: LEVOCARNITINE
  29. LECITHIN [Concomitant]
     Active Substance: LECITHIN
  30. SELENIUM [Concomitant]
     Active Substance: SELENIUM
  31. PAPAYA. [Concomitant]
     Active Substance: PAPAYA
  32. ALPHA LIPOIC ACID [Concomitant]
     Active Substance: .ALPHA.-LIPOIC ACID
  33. ASTRAGALUS ROOT [Concomitant]

REACTIONS (10)
  - Heart rate increased [None]
  - Product quality issue [None]
  - Anxiety [None]
  - Dyspnoea [None]
  - Blood pressure increased [None]
  - Palpitations [None]
  - Headache [None]
  - Product counterfeit [None]
  - Drug withdrawal syndrome [None]
  - Product formulation issue [None]

NARRATIVE: CASE EVENT DATE: 20150621
